FAERS Safety Report 4740648-8 (Version None)
Quarter: 2005Q3

REPORT INFORMATION
  Report Type: 
  Country: None (occurrence: None)
  Receive Date: 20050801
  Receipt Date: 20050630
  Transmission Date: 20060218
  Serious: No
  Sender: FDA-Public Use
  Company Number: 2005PV000224

PATIENT
  Age: 73 Year
  Sex: Male
  Weight: 124.2856 kg

DRUGS (19)
  1. BYETTA [Suspect]
     Indication: DIABETES MELLITUS NON-INSULIN-DEPENDENT
     Dosage: 5 UG; BID; SC
     Route: 058
     Dates: start: 20050623
  2. PREVACID [Concomitant]
  3. ISOSORBIDE DINITRATE [Concomitant]
  4. NEURONTIN [Concomitant]
  5. FUROSEMIDE [Concomitant]
  6. ATENOLOL [Concomitant]
  7. LEVOTHYROXINE [Concomitant]
  8. DILTIA XT [Concomitant]
  9. POTASSIUM CHLORIDE [Concomitant]
  10. PRANDIN [Concomitant]
  11. CYMBALTA [Concomitant]
  12. FLOMAX [Concomitant]
  13. UNIPHYL [Concomitant]
  14. ZOCOR [Concomitant]
  15. WARFARIN [Concomitant]
  16. ENALAPRIL [Concomitant]
  17. STOOL SOFTENER [Concomitant]
  18. VITAMIN B COMPLEX CAP [Concomitant]
  19. OXYGEN [Concomitant]

REACTIONS (3)
  - DIARRHOEA [None]
  - ERUCTATION [None]
  - NAUSEA [None]
